FAERS Safety Report 23736826 (Version 1)
Quarter: 2024Q2

REPORT INFORMATION
  Report Type: Spontaneous
  Country: IN (occurrence: IN)
  Receive Date: 20240412
  Receipt Date: 20240412
  Transmission Date: 20240716
  Serious: Yes (Other)
  Sender: FDA-Public Use
  Company Number: IN-SUN PHARMACEUTICAL INDUSTRIES LTD-2024R1-440006

PATIENT
  Age: 40 Year
  Sex: Male

DRUGS (3)
  1. DULOXETINE [Suspect]
     Active Substance: DULOXETINE
     Indication: Vision blurred
     Dosage: UNK (ONCE DAILY AFTER DINNER)
     Route: 065
     Dates: start: 2024
  2. DULOXETINE [Suspect]
     Active Substance: DULOXETINE
     Indication: Vomiting
  3. DULOXETINE [Suspect]
     Active Substance: DULOXETINE
     Indication: Dizziness

REACTIONS (4)
  - Diplopia [Unknown]
  - Disorientation [Unknown]
  - Vomiting [Unknown]
  - Vision blurred [Unknown]
